FAERS Safety Report 22631767 (Version 2)
Quarter: 2023Q2

REPORT INFORMATION
  Report Type: Report from Study
  Country: IN (occurrence: IN)
  Receive Date: 20230623
  Receipt Date: 20230623
  Transmission Date: 20230722
  Serious: Yes (Hospitalization, Other)
  Sender: FDA-Public Use
  Company Number: IN-002147023-NVSC2023IN139311

PATIENT
  Age: 29 Year
  Sex: Male

DRUGS (5)
  1. SIMULECT [Suspect]
     Active Substance: BASILIXIMAB
     Indication: Renal transplant
     Dosage: 20 MG
     Route: 042
     Dates: start: 20230426
  2. SIMULECT [Suspect]
     Active Substance: BASILIXIMAB
     Dosage: UNK
     Route: 065
     Dates: start: 20230430
  3. CETIL [Concomitant]
     Indication: Product used for unknown indication
     Dosage: 1 DOSAGE FORM
     Route: 048
     Dates: start: 20230607
  4. TACROREN [Concomitant]
     Indication: Product used for unknown indication
     Dosage: 1 MG
     Route: 048
     Dates: start: 20230424
  5. IMMUTIL S [Concomitant]
     Indication: Product used for unknown indication
     Dosage: 360 MG
     Route: 048
     Dates: start: 20230424

REACTIONS (8)
  - Kidney transplant rejection [Not Recovered/Not Resolved]
  - Dyspnoea [Recovered/Resolved]
  - Renal tubular injury [Unknown]
  - Tubulointerstitial nephritis [Unknown]
  - Renal tubular atrophy [Unknown]
  - Kidney fibrosis [Unknown]
  - Endothelial dysfunction [Unknown]
  - Toxicity to various agents [Unknown]

NARRATIVE: CASE EVENT DATE: 20230526
